FAERS Safety Report 15703447 (Version 2)
Quarter: 2018Q4

REPORT INFORMATION
  Report Type: Report from Study
  Country: IN (occurrence: IN)
  Receive Date: 20181210
  Receipt Date: 20181220
  Transmission Date: 20190205
  Serious: Yes (Other)
  Sender: FDA-Public Use
  Company Number: IN-ROCHE-2227585

PATIENT
  Age: 52 Year
  Sex: Male

DRUGS (1)
  1. BEVACIZUMAB. [Suspect]
     Active Substance: BEVACIZUMAB
     Indication: CHOROIDAL NEOVASCULARISATION
     Dosage: FORM STRENGTH: 100 MG/4 ML
     Route: 050

REACTIONS (5)
  - Transmission of an infectious agent via product [Unknown]
  - Product contamination microbial [Unknown]
  - Off label use [Unknown]
  - Endophthalmitis [Recovering/Resolving]
  - Intentional product use issue [Unknown]
